FAERS Safety Report 4268192-5 (Version None)
Quarter: 2004Q1

REPORT INFORMATION
  Report Type: 
  Country: None (occurrence: None)
  Receive Date: 20040109
  Receipt Date: 20031023
  Transmission Date: 20041129
  Serious: Yes (Other)
  Sender: FDA-Public Use
  Company Number: WAES 0310USA02791

PATIENT
  Sex: Male

DRUGS (1)
  1. MAXALT [Suspect]

REACTIONS (2)
  - BLINDNESS UNILATERAL [None]
  - RETINAL HAEMORRHAGE [None]
